FAERS Safety Report 12885642 (Version 2)
Quarter: 2016Q4

REPORT INFORMATION
  Report Type: Spontaneous
  Country: ZA (occurrence: ZA)
  Receive Date: 20161026
  Receipt Date: 20161128
  Transmission Date: 20170207
  Serious: Yes (Other)
  Sender: FDA-Public Use
  Company Number: ZA-ALLERGAN-1673737US

PATIENT
  Sex: Female

DRUGS (2)
  1. ESCITALOPRAM OXALATE - BP [Suspect]
     Active Substance: ESCITALOPRAM OXALATE
     Indication: PRODUCT USED FOR UNKNOWN INDICATION
     Dosage: 30 MG, QD
     Route: 065
  2. FLUANXOL [Suspect]
     Active Substance: FLUPENTIXOL
     Indication: PRODUCT USED FOR UNKNOWN INDICATION
     Dosage: 05. MG, TWICE A DAY OR WHEN NEEDED
     Route: 065

REACTIONS (3)
  - Weight decreased [Unknown]
  - Prescribed overdose [Unknown]
  - Gastric bypass [Unknown]
